FAERS Safety Report 7772697-X (Version None)
Quarter: 2011Q3

REPORT INFORMATION
  Report Type: 
  Country: None (occurrence: None)
  Receive Date: 20110922
  Receipt Date: 20110705
  Transmission Date: 20111222
  Serious: Yes (Other)
  Sender: FDA-Public Use
  Company Number: US-ASTRAZENECA-2010SE03963

PATIENT
  Sex: Female

DRUGS (12)
  1. SEROQUEL [Suspect]
     Route: 048
     Dates: start: 20040401
  2. NEURONTIN [Concomitant]
     Indication: PAIN
     Dates: start: 20050919
  3. BISMUTH SUBSALICYLATE [Concomitant]
     Dates: start: 20040401
  4. VISTARIL [Concomitant]
     Dates: start: 20040401
  5. CELEXA [Concomitant]
     Dates: start: 20040401
  6. TYLENOL-500 [Concomitant]
     Dates: start: 20021125
  7. KLONOPIN [Concomitant]
     Dates: start: 20021009
  8. SEROQUEL [Suspect]
     Route: 048
     Dates: start: 20021009
  9. CELEXA [Concomitant]
     Dates: start: 20050919
  10. BUSPAR [Concomitant]
     Dates: start: 20040401
  11. LOMOTIL [Concomitant]
     Dates: start: 20040401
  12. KLONOPIN [Concomitant]
     Dates: start: 20040401

REACTIONS (2)
  - DIABETES MELLITUS [None]
  - PANCREATITIS [None]
